FAERS Safety Report 4747715-3 (Version None)
Quarter: 2005Q3

REPORT INFORMATION
  Report Type: 
  Country: None (occurrence: None)
  Receive Date: 20050816
  Receipt Date: 20050805
  Transmission Date: 20060218
  Serious: Yes (Hospitalization)
  Sender: FDA-Public Use
  Company Number: 2005RL000100

PATIENT
  Age: 84 Year
  Sex: Male

DRUGS (3)
  1. ISRADIPINE CR (ISRADIPINE CR) [Suspect]
     Indication: HYPERTENSION
     Dosage: 5 MG; QD; PO
     Route: 048
     Dates: start: 20030101
  2. INHIBACE [Concomitant]
  3. PROSCAR [Concomitant]

REACTIONS (4)
  - BUNDLE BRANCH BLOCK LEFT [None]
  - CEREBROVASCULAR ACCIDENT [None]
  - ELECTROCARDIOGRAM PR SHORTENED [None]
  - SUPRAVENTRICULAR EXTRASYSTOLES [None]
